FAERS Safety Report 6535331-2 (Version None)
Quarter: 2010Q1

REPORT INFORMATION
  Report Type: 
  Country: None (occurrence: None)
  Receive Date: 20100113
  Receipt Date: 20100107
  Transmission Date: 20100710
  Serious: Yes (Other)
  Sender: FDA-Public Use
  Company Number: FR-ROCHE-678683

PATIENT
  Sex: Male

DRUGS (1)
  1. MIRCERA [Suspect]
     Route: 065

REACTIONS (2)
  - ORAL DISORDER [None]
  - TONGUE OEDEMA [None]
